FAERS Safety Report 13320470 (Version 1)
Quarter: 2017Q1

REPORT INFORMATION
  Report Type: Spontaneous
  Country: US (occurrence: US)
  Receive Date: 20170310
  Receipt Date: 20170310
  Transmission Date: 20170428
  Serious: Yes (Hospitalization, Other)
  Sender: FDA-Public Use
  Company Number: US-GLAXOSMITHKLINE-US2017GSK032903

PATIENT
  Age: 32 Year
  Sex: Male

DRUGS (1)
  1. BUPROPION HYDROCHLORIDE XL [Suspect]
     Active Substance: BUPROPION HYDROCHLORIDE
     Indication: PRODUCT USED FOR UNKNOWN INDICATION
     Dosage: 30-90 TABLET OF 300 MG BUPROPION XL

REACTIONS (9)
  - Status epilepticus [Recovered/Resolved]
  - Pneumonia aspiration [Unknown]
  - Mydriasis [Recovered/Resolved]
  - Drug level increased [Unknown]
  - Unresponsive to stimuli [Recovered/Resolved]
  - Pupil fixed [Recovered/Resolved]
  - Generalised tonic-clonic seizure [Recovered/Resolved]
  - Temporal lobe epilepsy [Recovered/Resolved]
  - Intentional overdose [Recovered/Resolved]
